FAERS Safety Report 6355599-5 (Version None)
Quarter: 2009Q3

REPORT INFORMATION
  Report Type: 
  Country: None (occurrence: None)
  Receive Date: 20090910
  Receipt Date: 20090825
  Transmission Date: 20100115
  Serious: Yes (Death)
  Sender: FDA-Public Use
  Company Number: 2008AL006569

PATIENT
  Age: 74 Year
  Sex: Male
  Weight: 88.905 kg

DRUGS (10)
  1. DIGOXIN [Suspect]
     Dosage: 0.125MG, DAILY, PO
     Route: 048
  2. METOPROLOL TARTRATE [Concomitant]
  3. LISINOPRIL [Concomitant]
  4. SOTONOL [Concomitant]
  5. ALLOPURINOL [Concomitant]
  6. WARFARIN SODIUM [Concomitant]
  7. FUROSEMIDE [Concomitant]
  8. FOLATE [Concomitant]
  9. DIAZEPAM [Concomitant]
  10. TYLENOL (CAPLET) [Concomitant]

REACTIONS (21)
  - ACTINIC KERATOSIS [None]
  - ANAEMIA [None]
  - ANXIETY [None]
  - BENIGN PROSTATIC HYPERPLASIA [None]
  - CARDIAC ARREST [None]
  - CARDIAC MURMUR [None]
  - CHEST PAIN [None]
  - CONDITION AGGRAVATED [None]
  - DYSPNOEA [None]
  - ECONOMIC PROBLEM [None]
  - EMOTIONAL DISORDER [None]
  - EPISTAXIS [None]
  - FAMILY STRESS [None]
  - HYPERLIPIDAEMIA [None]
  - ISCHAEMIC CARDIOMYOPATHY [None]
  - MULTIPLE INJURIES [None]
  - MYOCARDIAL INFARCTION [None]
  - OEDEMA [None]
  - PAIN [None]
  - SOCIAL PROBLEM [None]
  - UPPER RESPIRATORY TRACT INFECTION [None]
